FAERS Safety Report 18180874 (Version 1)
Quarter: 2020Q3

REPORT INFORMATION
  Report Type: Spontaneous
  Country: JP (occurrence: JP)
  Receive Date: 20200821
  Receipt Date: 20200821
  Transmission Date: 20201103
  Serious: Yes (Other)
  Sender: FDA-Public Use
  Company Number: JP-PFIZER INC-2020319353

PATIENT
  Age: 7 Decade
  Sex: Male

DRUGS (1)
  1. METHOTREXATE SODIUM. [Suspect]
     Active Substance: METHOTREXATE SODIUM
     Indication: ARTHRALGIA
     Dosage: UNK
     Route: 048

REACTIONS (4)
  - Haemophagocytic lymphohistiocytosis [Unknown]
  - Accidental overdose [Unknown]
  - Myelosuppression [Unknown]
  - Pancytopenia [Unknown]
